FAERS Safety Report 8124942-9 (Version None)
Quarter: 2012Q1

REPORT INFORMATION
  Report Type: 
  Country: None (occurrence: None)
  Receive Date: 20120209
  Receipt Date: 20120207
  Transmission Date: 20120608
  Serious: Yes (Other)
  Sender: FDA-Public Use
  Company Number: CA-ROCHE-1038172

PATIENT
  Sex: Male
  Weight: 76.272 kg

DRUGS (5)
  1. PLAVIX [Concomitant]
  2. ADALAT [Concomitant]
  3. NITROGLYCERIN SPRAY [Concomitant]
  4. ACTEMRA [Suspect]
     Indication: RHEUMATOID ARTHRITIS
     Route: 042
     Dates: start: 20100831
  5. PREDNISONE [Concomitant]

REACTIONS (1)
  - HIP FRACTURE [None]
